FAERS Safety Report 8974003 (Version 1)
Quarter: 2012Q4

REPORT INFORMATION
  Report Type: 
  Country: US (occurrence: US)
  Receive Date: 20121218
  Receipt Date: 20121218
  Transmission Date: 20130627
  Serious: No
  Sender: FDA-Public Use
  Company Number: US-BRISTOL-MYERS SQUIBB COMPANY-16838740

PATIENT
  Age: 7 Year
  Sex: Female

DRUGS (2)
  1. ABILIFY [Suspect]
     Dosage: Dose decreased to 1mg and then to 0.5mg
  2. TENEX [Suspect]

REACTIONS (1)
  - Tic [Not Recovered/Not Resolved]
